FAERS Safety Report 25131438 (Version 1)
Quarter: 2025Q1

REPORT INFORMATION
  Report Type: Spontaneous
  Country: FR (occurrence: FR)
  Receive Date: 20250327
  Receipt Date: 20250327
  Transmission Date: 20250409
  Serious: Yes (Other)
  Sender: MERCK SHARP & DOHME LLC
  Company Number: None

PATIENT
  Age: 58 Year
  Sex: Female
  Weight: 57 kg

DRUGS (8)
  1. CASPOFUNGIN ACETATE [Suspect]
     Active Substance: CASPOFUNGIN ACETATE
     Indication: Endocarditis candida
     Dosage: DOSE DESCRIPTION : 150 MILLIGRAM, QD?DAILY DOSE : 150 MILLIGRAM?REGIMEN DOSE : 1650  MILLIGRAM
     Route: 042
     Dates: start: 20241112, end: 20241123
  2. ACYCLOVIR [Concomitant]
     Active Substance: ACYCLOVIR
     Indication: Infection prophylaxis
     Dosage: DOSE DESCRIPTION : 250 MILLIGRAM, Q8H?DAILY DOSE : 750 MILLIGRAM?REGIMEN DOSE : 6750  MILLIGRAM
     Route: 042
     Dates: start: 20241111, end: 20241120
  3. BACTRIM [Suspect]
     Active Substance: SULFAMETHOXAZOLE\TRIMETHOPRIM
     Indication: Infection prophylaxis
     Dosage: DOSE DESCRIPTION : 800 MILLIGRAM, QOD?DAILY DOSE : 400 MILLIGRAM?REGIMEN DOSE : 7200  MILLIGRAM
     Route: 048
     Dates: start: 20241105, end: 20241122
  4. AMPHOTERICIN B [Suspect]
     Active Substance: AMPHOTERICIN B
     Indication: Systemic candida
     Dosage: DOSE DESCRIPTION : 1 DOSAGE FORM, Q8H?DAILY DOSE : 3 DOSAGE FORM?REGIMEN DOSE : 18  DOSAGE FORM
     Route: 048
     Dates: start: 20241117, end: 20241123
  5. LANSOPRAZOLE [Concomitant]
     Active Substance: LANSOPRAZOLE
     Indication: Product used for unknown indication
     Dosage: DOSE DESCRIPTION : 30 MILLIGRAM, QD?DAILY DOSE : 30 MILLIGRAM
     Route: 048
  6. PIPERACILLIN SODIUM\TAZOBACTAM SODIUM [Suspect]
     Active Substance: PIPERACILLIN SODIUM\TAZOBACTAM SODIUM
     Indication: Infection
     Dosage: DOSE DESCRIPTION : 4 GRAM, Q6H?DAILY DOSE : 16 GRAM?REGIMEN DOSE : 64  GRAM
     Route: 042
     Dates: start: 20241116, end: 20241120
  7. HYDROCORTISONE [Suspect]
     Active Substance: HYDROCORTISONE
     Indication: Product used for unknown indication
     Dosage: DOSE DESCRIPTION : 50 MILLIGRAM, Q12H?DAILY DOSE : 100 MILLIGRAM?REGIMEN DOSE : 900  MILLIGRAM
     Route: 042
     Dates: start: 20241116, end: 20241125
  8. HUMALOG [Concomitant]
     Active Substance: INSULIN LISPRO
     Indication: Diabetes mellitus
     Dosage: DOSE DESCRIPTION : 8 INTERNATIONAL UNIT, Q4H?DAILY DOSE : 48 INTERNATIONAL UNIT
     Route: 058
     Dates: start: 20241104

REACTIONS (1)
  - Renal tubular disorder [Recovered/Resolved]

NARRATIVE: CASE EVENT DATE: 20241123
